FAERS Safety Report 9352314 (Version 1)
Quarter: 2013Q2

REPORT INFORMATION
  Report Type: Spontaneous
  Country: US (occurrence: US)
  Receive Date: 20130617
  Receipt Date: 20130617
  Transmission Date: 20140414
  Serious: Yes (Other)
  Sender: FDA-Public Use
  Company Number: US-PFIZER INC-2013176232

PATIENT
  Age: 63 Year
  Sex: Female

DRUGS (5)
  1. XELJANZ [Suspect]
     Indication: RHEUMATOID ARTHRITIS
     Dosage: 5 MG, 2X/DAY
     Route: 048
     Dates: start: 201303
  2. LORATADINE [Concomitant]
     Dosage: 10 MG, UNK
  3. MELOXICAM [Concomitant]
     Dosage: 15 MG, UNK
  4. SYNTHROID [Concomitant]
     Dosage: 88 UG, UNK
  5. CALCIUM WITH VITAMIN D [Concomitant]
     Dosage: UNK

REACTIONS (2)
  - Urinary tract infection [Recovered/Resolved]
  - Nasopharyngitis [Recovered/Resolved]
